FAERS Safety Report 8415024-7 (Version None)
Quarter: 2012Q2

REPORT INFORMATION
  Report Type: 
  Country: None (occurrence: None)
  Receive Date: 20120606
  Receipt Date: 20120525
  Transmission Date: 20120825
  Serious: Yes (Other)
  Sender: FDA-Public Use
  Company Number: BR-JNJFOC-20120521085

PATIENT
  Sex: Female
  Weight: 65 kg

DRUGS (4)
  1. REMICADE [Suspect]
     Indication: RHEUMATOID ARTHRITIS
     Dosage: 3 AMPOULES EACH
     Route: 042
     Dates: start: 20120301
  2. REMICADE [Suspect]
     Route: 042
     Dates: start: 20120516
  3. METHOTREXATE [Suspect]
     Indication: RHEUMATOID ARTHRITIS
     Route: 065
     Dates: start: 20050101, end: 20110101
  4. REMICADE [Suspect]
     Dosage: 2 AMPOULES EACH
     Route: 042
     Dates: start: 20050101

REACTIONS (6)
  - RHEUMATOID ARTHRITIS [None]
  - BLOOD TRIGLYCERIDES INCREASED [None]
  - ABDOMINAL PAIN UPPER [None]
  - NAUSEA [None]
  - DEPRESSION [None]
  - WEIGHT INCREASED [None]
